APPROVED DRUG PRODUCT: NEMBUTAL
Active Ingredient: PENTOBARBITAL SODIUM
Strength: 30MG
Dosage Form/Route: SUPPOSITORY;RECTAL
Application: A083247 | Product #001
Applicant: SCIEGEN PHARMACEUTICALS INC
Approved: Jan 25, 1982 | RLD: No | RS: No | Type: DISCN